FAERS Safety Report 5691264-5 (Version None)
Quarter: 2008Q2

REPORT INFORMATION
  Report Type: 
  Country: None (occurrence: None)
  Receive Date: 20080402
  Receipt Date: 20080321
  Transmission Date: 20081010
  Serious: Yes (Other)
  Sender: FDA-Public Use
  Company Number: US-JNJFOC-20080305472

PATIENT
  Sex: Female
  Weight: 68.95 kg

DRUGS (1)
  1. FENTANYL TRANSDERMAL SYSTEM [Suspect]
     Indication: PAIN
     Route: 062

REACTIONS (11)
  - ARTHRITIS [None]
  - DYSPHAGIA [None]
  - FOAMING AT MOUTH [None]
  - OEDEMA PERIPHERAL [None]
  - PHARMACEUTICAL PRODUCT COMPLAINT [None]
  - PHARYNGEAL OEDEMA [None]
  - SECRETION DISCHARGE [None]
  - SKIN DISCOLOURATION [None]
  - THROAT IRRITATION [None]
  - THROAT TIGHTNESS [None]
  - WEIGHT INCREASED [None]
